FAERS Safety Report 19621394 (Version 1)
Quarter: 2021Q3

REPORT INFORMATION
  Report Type: Other
  Country: CA (occurrence: CA)
  Receive Date: 20210728
  Receipt Date: 20210728
  Transmission Date: 20211014
  Serious: Yes (Hospitalization)
  Sender: FDA-Public Use
  Company Number: CA-CELLTRION INC.-2021CA009792

PATIENT

DRUGS (16)
  1. RITUXIMAB (UNKNOWN) [Suspect]
     Active Substance: RITUXIMAB
     Indication: RHEUMATOID ARTHRITIS
     Dosage: 1000.0 MILLIGRAM
     Route: 042
  2. LOSEC [Concomitant]
     Active Substance: OMEPRAZOLE
  3. PREDNISONE. [Concomitant]
     Active Substance: PREDNISONE
     Indication: PREMEDICATION
     Dosage: 50.0 MILLIGRAM
     Route: 065
  4. ACETAMINOPHEN. [Concomitant]
     Active Substance: ACETAMINOPHEN
     Indication: PREMEDICATION
     Dosage: 1000.0 MILLIGRAM
     Route: 048
  5. ATACAND [Concomitant]
     Active Substance: CANDESARTAN CILEXETIL
  6. FOLIC ACID. [Concomitant]
     Active Substance: FOLIC ACID
  7. PROGESTERONE. [Concomitant]
     Active Substance: PROGESTERONE
  8. ELIQUIS [Concomitant]
     Active Substance: APIXABAN
     Dosage: 5.0 MILLIGRAM, 2 EVERY 1 DAYS
     Route: 065
  9. IRON [Concomitant]
     Active Substance: IRON
  10. NAPROXEN. [Concomitant]
     Active Substance: NAPROXEN
  11. SERTRALINE HYDROCHLORIDE. [Concomitant]
     Active Substance: SERTRALINE HYDROCHLORIDE
     Indication: DEPRESSION
  12. SYNTHROID [Concomitant]
     Active Substance: LEVOTHYROXINE SODIUM
  13. CALCIUM [Concomitant]
     Active Substance: CALCIUM
  14. SULFASALAZINE. [Concomitant]
     Active Substance: SULFASALAZINE
  15. METHOTREXATE. [Concomitant]
     Active Substance: METHOTREXATE
     Route: 037
  16. DIPHENHYDRAMINE. [Concomitant]
     Active Substance: DIPHENHYDRAMINE
     Indication: PREMEDICATION
     Dosage: 50.0 MILLIGRAM
     Route: 048

REACTIONS (2)
  - Heart rate decreased [Unknown]
  - Atrial flutter [Unknown]
